FAERS Safety Report 24173540 (Version 8)
Quarter: 2025Q3

REPORT INFORMATION
  Report Type: Spontaneous
  Country: JP (occurrence: JP)
  Receive Date: 20240805
  Receipt Date: 20250717
  Transmission Date: 20251020
  Serious: Yes (Death, Other)
  Sender: ROCHE
  Company Number: JP-CHUGAI-2024012345

PATIENT
  Age: 81 Year
  Sex: Male
  Weight: 54.1 kg

DRUGS (16)
  1. HEMLIBRA [Suspect]
     Active Substance: EMICIZUMAB-KXWH
     Indication: Acquired haemophilia
     Route: 058
     Dates: start: 20240309, end: 20240309
  2. HEMLIBRA [Suspect]
     Active Substance: EMICIZUMAB-KXWH
     Route: 058
     Dates: start: 20240310, end: 20240310
  3. HEMLIBRA [Suspect]
     Active Substance: EMICIZUMAB-KXWH
     Dosage: 90 MILLIGRAM, ONCE/WEEK
     Route: 058
     Dates: start: 20240316
  4. HEMLIBRA [Suspect]
     Active Substance: EMICIZUMAB-KXWH
     Dosage: 75 MILLIGRAM, ONCE/WEEK
     Route: 058
     Dates: end: 20240920
  5. HEPARIN [Suspect]
     Active Substance: HEPARIN SODIUM
     Indication: Product used for unknown indication
     Route: 065
  6. FUROSEMIDE [Concomitant]
     Active Substance: FUROSEMIDE
     Route: 050
     Dates: start: 20240124
  7. MIYA-BM [Concomitant]
     Active Substance: CLOSTRIDIUM BUTYRICUM SPORES STRAIN M-55
     Route: 050
     Dates: start: 20240123, end: 20240423
  8. VONOPRAZAN FUMARATE [Concomitant]
     Active Substance: VONOPRAZAN FUMARATE
     Route: 050
     Dates: start: 20240228
  9. SAMSCA [Concomitant]
     Active Substance: TOLVAPTAN
     Route: 050
     Dates: start: 20240316
  10. CILNIDIPINE [Concomitant]
     Active Substance: CILNIDIPINE
     Route: 050
     Dates: start: 20240322
  11. AZILSARTAN KAMEDOXOMIL [Concomitant]
     Active Substance: AZILSARTAN KAMEDOXOMIL
     Route: 050
     Dates: start: 20240324, end: 20240521
  12. ELOBIXIBAT [Concomitant]
     Active Substance: ELOBIXIBAT
     Route: 050
     Dates: start: 20240506
  13. MAGNESIUM OXIDE [Concomitant]
     Active Substance: MAGNESIUM OXIDE
     Route: 050
     Dates: start: 20240510
  14. HERBALS [Concomitant]
     Active Substance: HERBALS
     Route: 050
     Dates: start: 20240423, end: 20240505
  15. TU-100 [Concomitant]
     Active Substance: ASIAN GINSENG\GINGER\ZANTHOXYLUM PIPERITUM FRUIT PULP
     Dosage: 2.5 GRAM, BID
     Route: 050
     Dates: start: 20240523
  16. LEVOTHYROXINE SODIUM [Concomitant]
     Active Substance: LEVOTHYROXINE SODIUM
     Route: 050
     Dates: start: 20240529

REACTIONS (4)
  - General physical health deterioration [Fatal]
  - Therapeutic response decreased [Unknown]
  - Activated partial thromboplastin time prolonged [Recovering/Resolving]
  - Marasmus [Fatal]

NARRATIVE: CASE EVENT DATE: 20240328
